FAERS Safety Report 13800928 (Version 1)
Quarter: 2017Q3

REPORT INFORMATION
  Report Type: Spontaneous
  Country: CA (occurrence: CA)
  Receive Date: 20170727
  Receipt Date: 20170727
  Transmission Date: 20171127
  Serious: Yes (Hospitalization)
  Sender: FDA-Public Use
  Company Number: CA-PFIZER INC-1560461

PATIENT
  Age: 61 Year
  Sex: Male
  Weight: 104.4 kg

DRUGS (4)
  1. PREDNISONE. [Suspect]
     Active Substance: PREDNISONE
     Indication: DIFFUSE LARGE B-CELL LYMPHOMA
     Dosage: LAST DOSE TAKEN ON 21 JAN 2012: 100MG, 1 IN 3 WK
     Route: 048
     Dates: start: 20111205
  2. VINCRISTINE SULFATE. [Suspect]
     Active Substance: VINCRISTINE SULFATE
     Indication: DIFFUSE LARGE B-CELL LYMPHOMA
     Dosage: LAST DOSE TAKEN ON 17 JAN 2012: 2 MG,1 IN 3 WK
     Route: 042
     Dates: start: 20111205
  3. CYCLOPHOSPHAMIDE. [Suspect]
     Active Substance: CYCLOPHOSPHAMIDE
     Indication: DIFFUSE LARGE B-CELL LYMPHOMA
     Dosage: LAST DOSE TAKEN ON 17 JAN 2012: 1770 MG, 1 IN 3 WK
     Route: 042
     Dates: start: 20111205
  4. DOXORUBICIN [Suspect]
     Active Substance: DOXORUBICIN
     Indication: DIFFUSE LARGE B-CELL LYMPHOMA
     Dosage: LAST DOSE TAKEN ON 17 JAN 2012: 118MG, 1 IN 3 WK
     Route: 042
     Dates: start: 20111205

REACTIONS (3)
  - White blood cell count decreased [Recovered/Resolved]
  - Cellulitis [Not Recovered/Not Resolved]
  - Febrile neutropenia [Not Recovered/Not Resolved]

NARRATIVE: CASE EVENT DATE: 20120129
